FAERS Safety Report 17511837 (Version 1)
Quarter: 2020Q1

REPORT INFORMATION
  Report Type: Spontaneous
  Country: US (occurrence: US)
  Receive Date: 20200306
  Receipt Date: 20200306
  Transmission Date: 20200409
  Serious: No
  Sender: FDA-Public Use
  Company Number: US-PERRIGO-19US016358

PATIENT
  Age: 79 Year
  Sex: Female
  Weight: 63.04 kg

DRUGS (3)
  1. DICLOFENAC SODIUM. [Suspect]
     Active Substance: DICLOFENAC SODIUM
     Dosage: 2 G, PRN
     Route: 061
     Dates: start: 201911
  2. DICLOFENAC SODIUM. [Suspect]
     Active Substance: DICLOFENAC SODIUM
     Indication: PAIN IN EXTREMITY
     Dosage: UNKNOWN, SINGLE
     Route: 061
     Dates: start: 20191224, end: 20191224
  3. PEPCID AC [Concomitant]
     Active Substance: FAMOTIDINE
     Indication: GASTROOESOPHAGEAL REFLUX DISEASE
     Dosage: UNK
     Route: 048

REACTIONS (4)
  - Accidental exposure to product [Recovered/Resolved]
  - Eye pruritus [Not Recovered/Not Resolved]
  - Skin exfoliation [Not Recovered/Not Resolved]
  - Periorbital swelling [Not Recovered/Not Resolved]

NARRATIVE: CASE EVENT DATE: 20191224
